FAERS Safety Report 8495660-2 (Version None)
Quarter: 2012Q3

REPORT INFORMATION
  Report Type: 
  Country: None (occurrence: None)
  Receive Date: 20120709
  Receipt Date: 20120629
  Transmission Date: 20120928
  Serious: Yes (Hospitalization)
  Sender: FDA-Public Use
  Company Number: MX-ROCHE-1082898

PATIENT
  Sex: Female
  Weight: 65 kg

DRUGS (1)
  1. AVASTIN [Suspect]
     Indication: OVARIAN CANCER
     Dosage: DOSAGE FORM: 7.5 MG/KG
     Route: 042
     Dates: start: 20120627

REACTIONS (1)
  - RENAL FAILURE ACUTE [None]
